FAERS Safety Report 19493464 (Version 1)
Quarter: 2021Q3

REPORT INFORMATION
  Report Type: Spontaneous
  Country: US (occurrence: US)
  Receive Date: 20210705
  Receipt Date: 20210705
  Transmission Date: 20211014
  Serious: Yes (Hospitalization)
  Sender: FDA-Public Use
  Company Number: US-PFIZER INC-2016216969

PATIENT
  Age: 74 Year
  Sex: Female

DRUGS (30)
  1. SULFAMETHOXAZOLE AND TRIMETHOPRIM [Concomitant]
     Active Substance: SULFAMETHOXAZOLE\TRIMETHOPRIM
     Dosage: 1 DF, 2X/DAY (SULFAMETHOXAZOLE800 MG TRLMETHOPRIM160 MG TABLET)
     Route: 048
     Dates: start: 20160311
  2. TRAZODONE HYDROCHLORIDE. [Concomitant]
     Active Substance: TRAZODONE HYDROCHLORIDE
     Dosage: 100 MG, AS NEEDED (QHS)
     Route: 048
     Dates: start: 20160311
  3. PROMETHAZINE [Concomitant]
     Active Substance: PROMETHAZINE HYDROCHLORIDE
     Dosage: 25 MG, AS NEEDED (EVERY 6 HOUR)
     Route: 048
     Dates: start: 20150426
  4. LYRICA [Suspect]
     Active Substance: PREGABALIN
     Dosage: 225 MG, 1X/DAY (QD)
     Route: 048
  5. LYRICA [Suspect]
     Active Substance: PREGABALIN
     Dosage: 225 MG, 2X/DAY [1TAB ORALLY 2 TIMES A DAY]
     Route: 048
  6. SYNTHROID [Concomitant]
     Active Substance: LEVOTHYROXINE SODIUM
     Dosage: 112 UG, 1X/DAY
     Route: 048
     Dates: start: 20160212
  7. VITAMIN D2 [Concomitant]
     Active Substance: ERGOCALCIFEROL
     Dosage: 50000 IU, WEEKLY, (TAKE 1 CAPSULE BY MOUTH ONCE A WEEK ORALLY AS DIRECTED)
     Route: 048
  8. FLONASE [Concomitant]
     Active Substance: FLUTICASONE PROPIONATE
     Dosage: 50 UG, 1X/DAY  (50 MCG/INH SPRAY), (INTRANASALLY)
     Route: 045
     Dates: start: 20160802
  9. IMITREX [Concomitant]
     Active Substance: SUMATRIPTAN SUCCINATE
     Indication: HEADACHE
     Dosage: UNK UNK, AS NEEDED  (0.5?1 TAB(S) ORALLY ONCE), (MAY REPEAT IN 2 HRS IF NEEDED)
     Route: 048
     Dates: start: 20160601
  10. LYRICA [Suspect]
     Active Substance: PREGABALIN
     Indication: MULTIPLE SCLEROSIS
     Dosage: 75 MG, 2X/DAY
     Route: 048
  11. CALCIUM CARBONATE. [Concomitant]
     Active Substance: CALCIUM CARBONATE
     Dosage: 1200 MG, DAILY (600MG TABLET: 2 TAB)
     Route: 048
  12. AMOXICILLIN. [Concomitant]
     Active Substance: AMOXICILLIN
     Dosage: 500 MG, 3X/DAY
     Route: 048
     Dates: start: 20160314
  13. CALCIUM [Concomitant]
     Active Substance: CALCIUM
     Dosage: 1200 MG, DAILY, (2 TAB ORALLY DAILY)
     Route: 048
  14. RIZATRIPTAN BENZOATE. [Concomitant]
     Active Substance: RIZATRIPTAN BENZOATE
     Dosage: 10 MG, 1X/DAY
     Route: 048
  15. HYDROCORTISONE. [Concomitant]
     Active Substance: HYDROCORTISONE
     Dosage: 25 MG, 2X/DAY
     Route: 054
     Dates: start: 20141217
  16. CITALOPRAM HYDROBROMIDE. [Concomitant]
     Active Substance: CITALOPRAM HYDROBROMIDE
     Dosage: 40 MG, 1X/DAY
     Route: 048
  17. AMOXICILLIN. [Concomitant]
     Active Substance: AMOXICILLIN
     Dosage: UNK
  18. ATORVASTATIN CALCIUM. [Concomitant]
     Active Substance: ATORVASTATIN CALCIUM
     Dosage: 40 MG, 1X/DAY, (1 TAB(S) ORALLY ONCE A DAY (AT BEDTIME))
     Route: 048
     Dates: start: 20160922
  19. STOOL SOFTNER [Concomitant]
     Dosage: 3 DF, DAILY
  20. CITALOPRAM HYDROBROMIDE. [Concomitant]
     Active Substance: CITALOPRAM HYDROBROMIDE
     Dosage: 40 MG, DAILY
     Route: 048
     Dates: start: 20150108
  21. DIAZEPAM. [Concomitant]
     Active Substance: DIAZEPAM
     Indication: PANIC ATTACK
     Dosage: 2 MG, AS NEEDED (SIG 1 TAB(S) ORALLY QD PRN
     Route: 048
     Dates: start: 20160311
  22. PROMETHAZINE [Concomitant]
     Active Substance: PROMETHAZINE HYDROCHLORIDE
     Indication: NAUSEA
     Dosage: 25 MG, AS NEEDED (EVERY 6 HOUR)
     Route: 048
     Dates: start: 20150407
  23. ACETAMINOPHEN W/OXYCODONE HYDROCHLORIDE [Concomitant]
     Active Substance: ACETAMINOPHEN\OXYCODONE HYDROCHLORIDE
     Indication: PAIN
     Dosage: 1 DF, AS NEEDED [OXYCODONE HYDROCHLORIDE: 7.5 MG]/[PARACETAMOL: 325MG], (ORALLY TID?QID PRN PAIN)
     Route: 048
     Dates: start: 20160503
  24. LYRICA [Suspect]
     Active Substance: PREGABALIN
     Indication: PARAESTHESIA
     Dosage: 225 MG, 2X/DAY
     Route: 048
  25. LYRICA [Suspect]
     Active Substance: PREGABALIN
     Indication: HYPOTHYROIDISM
     Dosage: 225 MG, 2X/DAY, (MOUTH 2 (TWO) TIMES DAILY)
     Route: 048
  26. PERCOCET [Concomitant]
     Active Substance: ACETAMINOPHEN\OXYCODONE HYDROCHLORIDE
     Dosage: 1 DF, AS NEEDED  (TLD, QID)
     Route: 048
  27. CYMBALTA [Concomitant]
     Active Substance: DULOXETINE HYDROCHLORIDE
     Dosage: 30 MG, UNK (ONCE DAILY ORALLY BID)
     Route: 048
     Dates: start: 20150722
  28. FLEET GLYCERINE [Concomitant]
     Dosage: UNK UNK, ALTERNATE DAY, (1 SUPP(S) RECTALLY EVERY OTHER DAY)
     Route: 054
     Dates: start: 20160705
  29. IRON [Concomitant]
     Active Substance: IRON
     Dosage: 2 DF, DAILY  (325, SIG: 2 TAB DAILY)
  30. BENZONATATE. [Concomitant]
     Active Substance: BENZONATATE
     Dosage: 200 MG, AS NEEDED, (1 CAP(S) ORALLY TID PRN )
     Route: 048
     Dates: start: 20160802

REACTIONS (1)
  - Hip fracture [Unknown]
